FAERS Safety Report 10758560 (Version 3)
Quarter: 2015Q2

REPORT INFORMATION
  Report Type: Spontaneous
  Country: US (occurrence: US)
  Receive Date: 20150203
  Receipt Date: 20150507
  Transmission Date: 20150821
  Serious: Yes (Other)
  Sender: FDA-Public Use
  Company Number: US-009507513-1501USA012247

PATIENT
  Sex: Female
  Weight: 100.23 kg

DRUGS (1)
  1. NEXPLANON [Suspect]
     Active Substance: ETONOGESTREL
     Indication: CONTRACEPTION
     Dosage: 1 ROD EVERY 3 YEAR, IN LEFT ARM
     Route: 059
     Dates: start: 20130529, end: 20150116

REACTIONS (3)
  - Application site discomfort [Not Recovered/Not Resolved]
  - Implant site pain [Unknown]
  - Device breakage [Recovered/Resolved]
